FAERS Safety Report 21777971 (Version 1)
Quarter: 2022Q4

REPORT INFORMATION
  Report Type: Spontaneous
  Country: US (occurrence: US)
  Receive Date: 20221226
  Receipt Date: 20221226
  Transmission Date: 20230113
  Serious: Yes (Hospitalization, Other)
  Sender: FDA-Public Use
  Company Number: US-APOTEX-2022AP017431

PATIENT
  Age: 47 Year
  Sex: Female

DRUGS (1)
  1. ACETAMINOPHEN [Suspect]
     Active Substance: ACETAMINOPHEN
     Indication: Toothache
     Dosage: 1 GRAM, Q.4H. (FOR 2-3 DAYS)
     Route: 048

REACTIONS (9)
  - Overdose [Unknown]
  - Acute kidney injury [Recovered/Resolved]
  - Analgesic drug level increased [Unknown]
  - Dizziness [Recovered/Resolved]
  - Confusional state [Recovered/Resolved]
  - Blood lactic acid increased [Recovered/Resolved]
  - Hypoglycaemia [Recovered/Resolved]
  - Hypotension [Recovered/Resolved]
  - Transaminases increased [Recovered/Resolved]
